FAERS Safety Report 25059068 (Version 2)
Quarter: 2025Q1

REPORT INFORMATION
  Report Type: Spontaneous
  Country: CZ (occurrence: CZ)
  Receive Date: 20250310
  Receipt Date: 20250328
  Transmission Date: 20250408
  Serious: Yes (Other)
  Sender: CELLTRION
  Company Number: CZ-SAMSUNG BIOEPIS-SB-2024-26719

PATIENT

DRUGS (2)
  1. ADALIMUMAB [Suspect]
     Active Substance: ADALIMUMAB
     Indication: Hidradenitis
     Dosage: 40 MG WEEKLY
  2. ADALIMUMAB [Suspect]
     Active Substance: ADALIMUMAB
     Dosage: 40 MG / WEEK (REINTRODUCED DUE TO HS PROGRESSION)

REACTIONS (1)
  - Squamous cell carcinoma of skin [Recovered/Resolved]
